FAERS Safety Report 8979494 (Version 1)
Quarter: 2012Q4

REPORT INFORMATION
  Report Type: 
  Country: JP (occurrence: JP)
  Receive Date: 20121221
  Receipt Date: 20121221
  Transmission Date: 20130627
  Serious: Yes (Other)
  Sender: FDA-Public Use
  Company Number: JP-009507513-1212JPN006001

PATIENT
  Age: 47 Year
  Sex: Female

DRUGS (1)
  1. GASTER [Suspect]
     Dosage: UNK
     Route: 048
     Dates: start: 201011, end: 201101

REACTIONS (1)
  - Stevens-Johnson syndrome [Unknown]
